FAERS Safety Report 6834162-3 (Version None)
Quarter: 2010Q3

REPORT INFORMATION
  Report Type: 
  Country: None (occurrence: None)
  Receive Date: 20100712
  Receipt Date: 20070710
  Transmission Date: 20110219
  Serious: No
  Sender: FDA-Public Use
  Company Number: US-PFIZER INC-2007026795

PATIENT
  Sex: Female
  Weight: 77.11 kg

DRUGS (7)
  1. CHANTIX [Suspect]
     Indication: SMOKING CESSATION THERAPY
     Dates: start: 20070402
  2. BISOPROLOL [Concomitant]
  3. CRESTOR [Concomitant]
  4. NEXIUM [Concomitant]
  5. FUROSEMIDE [Concomitant]
  6. IBUPROFEN [Concomitant]
     Indication: SURGERY
  7. ACETYLSALICYLIC ACID [Concomitant]

REACTIONS (2)
  - ABDOMINAL DISTENSION [None]
  - MEDICATION ERROR [None]
